FAERS Safety Report 7290143-X (Version None)
Quarter: 2011Q1

REPORT INFORMATION
  Report Type: 
  Country: None (occurrence: None)
  Receive Date: 20110214
  Receipt Date: 20110203
  Transmission Date: 20110831
  Serious: Yes (Hospitalization)
  Sender: FDA-Public Use
  Company Number: US-JNJFOC-20110201742

PATIENT
  Age: 56 Year
  Sex: Male
  Weight: 127.01 kg

DRUGS (4)
  1. METFORMIN HYDROCHLORIDE [Concomitant]
     Indication: DIABETES MELLITUS
     Route: 065
  2. ARESTIN [Suspect]
     Indication: PERIODONTAL DISEASE
     Route: 048
  3. COZAAR [Concomitant]
     Indication: HYPERTENSION
     Route: 065
  4. TRICOR [Concomitant]
     Indication: BLOOD CHOLESTEROL INCREASED
     Route: 065

REACTIONS (2)
  - ARTHRALGIA [None]
  - RASH GENERALISED [None]
